FAERS Safety Report 11415684 (Version 1)
Quarter: 2015Q3

REPORT INFORMATION
  Report Type: Spontaneous
  Country: US (occurrence: None)
  Receive Date: 20150824
  Receipt Date: 20150824
  Transmission Date: 20151125
  Serious: Yes (Other)
  Sender: FDA-Public Use
  Company Number: None

PATIENT
  Age: 50 Year
  Sex: Female
  Weight: 88.91 kg

DRUGS (6)
  1. MIRALAX [Suspect]
     Active Substance: POLYETHYLENE GLYCOL 3350
     Indication: ENDOSCOPY
     Dosage: 2 TSP
     Route: 048
     Dates: start: 20150603, end: 20150604
  2. FOLIC ACID. [Concomitant]
     Active Substance: FOLIC ACID
  3. BABY ASPIRIN [Concomitant]
     Active Substance: ASPIRIN
  4. MIRALAX [Suspect]
     Active Substance: POLYETHYLENE GLYCOL 3350
     Indication: COLONOSCOPY
     Dosage: 2 TSP
     Route: 048
     Dates: start: 20150603, end: 20150604
  5. FLUOXETINE [Concomitant]
     Active Substance: FLUOXETINE\FLUOXETINE HYDROCHLORIDE
  6. CENTRUM MULTIVITAMIN [Concomitant]

REACTIONS (3)
  - Documented hypersensitivity to administered product [None]
  - Drug dispensing error [None]
  - Wrong drug administered [None]

NARRATIVE: CASE EVENT DATE: 20150604
